FAERS Safety Report 22144665 (Version 7)
Quarter: 2025Q1

REPORT INFORMATION
  Report Type: Spontaneous
  Country: GB (occurrence: GB)
  Receive Date: 20230328
  Receipt Date: 20250108
  Transmission Date: 20250409
  Serious: Yes (Other)
  Sender: AUROBINDO
  Company Number: GB-CELLTRION HEALTHCARE HUNGARY KFT-2023GB005188

PATIENT
  Sex: Female

DRUGS (23)
  1. LEFLUNOMIDE [Suspect]
     Active Substance: LEFLUNOMIDE
     Indication: Psoriatic arthropathy
     Route: 065
     Dates: start: 202008, end: 202008
  2. LEFLUNOMIDE [Suspect]
     Active Substance: LEFLUNOMIDE
     Route: 058
     Dates: start: 202008, end: 202008
  3. LEFLUNOMIDE [Suspect]
     Active Substance: LEFLUNOMIDE
     Indication: Psoriatic arthropathy
     Route: 065
  4. LEFLUNOMIDE [Suspect]
     Active Substance: LEFLUNOMIDE
     Route: 065
  5. LEFLUNOMIDE [Suspect]
     Active Substance: LEFLUNOMIDE
     Route: 065
  6. LEFLUNOMIDE [Suspect]
     Active Substance: LEFLUNOMIDE
     Route: 065
  7. ADALIMUMAB [Suspect]
     Active Substance: ADALIMUMAB
     Indication: Psoriatic arthropathy
     Route: 058
  8. ADALIMUMAB [Suspect]
     Active Substance: ADALIMUMAB
     Route: 058
  9. COSENTYX [Suspect]
     Active Substance: SECUKINUMAB
     Indication: Psoriatic arthropathy
     Route: 065
     Dates: start: 201903
  10. ENBREL [Suspect]
     Active Substance: ETANERCEPT
     Indication: Psoriatic arthropathy
     Route: 065
  11. ETANERCEPT [Suspect]
     Active Substance: ETANERCEPT
     Indication: Psoriatic arthropathy
     Route: 065
  12. ETANERCEPT [Suspect]
     Active Substance: ETANERCEPT
     Route: 065
  13. METHOTREXATE [Suspect]
     Active Substance: METHOTREXATE
     Indication: Psoriatic arthropathy
     Route: 058
     Dates: start: 201809, end: 202008
  14. METHOTREXATE [Suspect]
     Active Substance: METHOTREXATE
     Route: 058
     Dates: start: 202008
  15. METHOTREXATE [Suspect]
     Active Substance: METHOTREXATE
     Route: 065
     Dates: start: 201903
  16. METHOTREXATE [Suspect]
     Active Substance: METHOTREXATE
     Route: 065
     Dates: start: 201809
  17. PREDNISOLONE [Suspect]
     Active Substance: PREDNISOLONE
     Indication: Psoriatic arthropathy
     Route: 065
     Dates: start: 201903
  18. PREDNISOLONE [Suspect]
     Active Substance: PREDNISOLONE
     Route: 065
     Dates: start: 201903
  19. SECUKINUMAB [Suspect]
     Active Substance: SECUKINUMAB
     Indication: Psoriatic arthropathy
     Route: 065
     Dates: start: 201903
  20. SECUKINUMAB [Suspect]
     Active Substance: SECUKINUMAB
     Route: 065
     Dates: start: 202008
  21. SULFASALAZINE [Suspect]
     Active Substance: SULFASALAZINE
     Indication: Psoriatic arthropathy
     Route: 065
     Dates: start: 201809
  22. TOFACITINIB [Suspect]
     Active Substance: TOFACITINIB
     Indication: Psoriatic arthropathy
     Route: 065
  23. TOFACITINIB [Suspect]
     Active Substance: TOFACITINIB
     Route: 065
     Dates: start: 202008

REACTIONS (1)
  - Multiple-drug resistance [Unknown]
